FAERS Safety Report 13391748 (Version 1)
Quarter: 2017Q1

REPORT INFORMATION
  Report Type: Spontaneous
  Country: US (occurrence: US)
  Receive Date: 20170331
  Receipt Date: 20170331
  Transmission Date: 20170429
  Serious: No
  Sender: FDA-Public Use
  Company Number: US-009507513-1703USA008762

PATIENT
  Age: 24 Year
  Sex: Female
  Weight: 79.37 kg

DRUGS (1)
  1. NEXPLANON [Suspect]
     Active Substance: ETONOGESTREL
     Indication: CONTRACEPTION
     Dosage: 1 IMPLANT FOR 3 YEARS
     Route: 059
     Dates: start: 20170313

REACTIONS (8)
  - Depression [Unknown]
  - Pain [Unknown]
  - Female sexual dysfunction [Unknown]
  - Implant site pain [Unknown]
  - Vulvovaginal dryness [Unknown]
  - Crying [Unknown]
  - Vulvovaginal pain [Unknown]
  - Implant site nodule [Unknown]

NARRATIVE: CASE EVENT DATE: 201703
